FAERS Safety Report 10416819 (Version 1)
Quarter: 2014Q3

REPORT INFORMATION
  Report Type: Spontaneous
  Country: FR (occurrence: FR)
  Receive Date: 20140828
  Receipt Date: 20140828
  Transmission Date: 20150326
  Serious: Yes (Death, Life-Threatening, Hospitalization)
  Sender: FDA-Public Use
  Company Number: FR-BRISTOL-MYERS SQUIBB COMPANY-21339106

PATIENT
  Age: 91 Year
  Sex: Female

DRUGS (1)
  1. COUMADINE [Suspect]
     Active Substance: WARFARIN SODIUM
     Indication: ATRIAL FIBRILLATION
     Dosage: TABS
     Route: 048
     Dates: end: 20140123

REACTIONS (6)
  - Rectal haemorrhage [Fatal]
  - Abdominal pain [Unknown]
  - Melaena [Fatal]
  - Vomiting [Unknown]
  - Dehydration [Unknown]
  - Renal failure acute [Unknown]

NARRATIVE: CASE EVENT DATE: 20140123
